FAERS Safety Report 24970971 (Version 1)
Quarter: 2025Q1

REPORT INFORMATION
  Report Type: Spontaneous
  Country: US (occurrence: US)
  Receive Date: 20250214
  Receipt Date: 20250214
  Transmission Date: 20250408
  Serious: Yes (Hospitalization)
  Sender: AMGEN
  Company Number: US-AMGEN-USASP2025026417

PATIENT
  Age: 67 Year
  Sex: Male

DRUGS (2)
  1. REPATHA [Suspect]
     Active Substance: EVOLOCUMAB
     Indication: Product used for unknown indication
     Dosage: 140 MILLIGRAM, QMO
     Route: 058
  2. OXYGEN [Concomitant]
     Active Substance: OXYGEN

REACTIONS (9)
  - Surgery [Recovering/Resolving]
  - Post procedural infection [Recovering/Resolving]
  - Influenza [Recovering/Resolving]
  - Urinary tract infection [Recovering/Resolving]
  - Viral infection [Recovering/Resolving]
  - Device difficult to use [Unknown]
  - Accidental exposure to product [Unknown]
  - Drug dose omission by device [Unknown]
  - Off label use [Unknown]

NARRATIVE: CASE EVENT DATE: 20250207
